FAERS Safety Report 5787215-5 (Version None)
Quarter: 2008Q2

REPORT INFORMATION
  Report Type: 
  Country: None (occurrence: None)
  Receive Date: 20080625
  Receipt Date: 20070918
  Transmission Date: 20081010
  Serious: No
  Sender: FDA-Public Use
  Company Number: US-ASTRAZENECA-2007UW21958

PATIENT
  Age: 80 Year
  Sex: Female
  Weight: 68 kg

DRUGS (3)
  1. PULMICORT RESPULES [Suspect]
     Indication: ASTHMA
     Route: 055
     Dates: start: 20070908
  2. ATROVENT [Concomitant]
  3. XOPENEX [Concomitant]

REACTIONS (3)
  - DYSPNOEA [None]
  - WHEEZING [None]
  - WRONG TECHNIQUE IN DRUG USAGE PROCESS [None]
